FAERS Safety Report 14846368 (Version 1)
Quarter: 2018Q2

REPORT INFORMATION
  Report Type: Spontaneous
  Country: US (occurrence: US)
  Receive Date: 20180504
  Receipt Date: 20180504
  Transmission Date: 20180711
  Serious: No
  Sender: FDA-Public Use
  Company Number: US-TEVA-798612ACC

PATIENT
  Sex: Female

DRUGS (2)
  1. AVIANE [Suspect]
     Active Substance: ETHINYL ESTRADIOL\LEVONORGESTREL
     Indication: MENSTRUATION DELAYED
  2. AVIANE [Suspect]
     Active Substance: ETHINYL ESTRADIOL\LEVONORGESTREL
     Indication: CONTRACEPTION
     Dosage: DOSE STRENGTH:  0.1/0.02
     Dates: start: 201702

REACTIONS (3)
  - Vomiting [Unknown]
  - Intentional dose omission [Unknown]
  - Vaginal haemorrhage [Not Recovered/Not Resolved]

NARRATIVE: CASE EVENT DATE: 20170804
